FAERS Safety Report 7558337-3 (Version None)
Quarter: 2011Q2

REPORT INFORMATION
  Report Type: 
  Country: None (occurrence: None)
  Receive Date: 20110620
  Receipt Date: 20110608
  Transmission Date: 20111010
  Serious: Yes (Hospitalization)
  Sender: FDA-Public Use
  Company Number: US-UCBSA-029613

PATIENT
  Sex: Male
  Weight: 21.9 kg

DRUGS (3)
  1. TRILEPTAL [Concomitant]
     Indication: CONVULSION
     Route: 048
     Dates: start: 20081101
  2. LACOSAMIDE [Suspect]
     Indication: PARTIAL SEIZURES
     Route: 048
     Dates: start: 20100602
  3. LAMICTAL [Concomitant]
     Indication: CONVULSION
     Route: 048
     Dates: start: 20100707

REACTIONS (1)
  - DEHYDRATION [None]
